FAERS Safety Report 16643163 (Version 1)
Quarter: 2019Q3

REPORT INFORMATION
  Report Type: Spontaneous
  Country: US (occurrence: US)
  Receive Date: 20190729
  Receipt Date: 20190729
  Transmission Date: 20191004
  Serious: No
  Sender: FDA-Public Use
  Company Number: US-PFIZER INC-2019322088

PATIENT
  Age: 58 Year
  Sex: Female
  Weight: 57.15 kg

DRUGS (1)
  1. LYRICA [Suspect]
     Active Substance: PREGABALIN
     Indication: NEUROPATHY PERIPHERAL
     Dosage: 150 MG, 2X/DAY
     Route: 048
     Dates: start: 2016

REACTIONS (4)
  - Weight increased [Not Recovered/Not Resolved]
  - Eating disorder [Unknown]
  - Therapeutic product effect incomplete [Unknown]
  - Anger [Unknown]

NARRATIVE: CASE EVENT DATE: 2017
